FAERS Safety Report 19912783 (Version 3)
Quarter: 2021Q4

REPORT INFORMATION
  Report Type: Report from Study
  Country: MX (occurrence: MX)
  Receive Date: 20211004
  Receipt Date: 20211028
  Transmission Date: 20220303
  Serious: Yes (Other)
  Sender: FDA-Public Use
  Company Number: NVSC2021MX223195

PATIENT
  Sex: Female
  Weight: 73 kg

DRUGS (6)
  1. HYDROCHLOROTHIAZIDE\VALSARTAN [Suspect]
     Active Substance: HYDROCHLOROTHIAZIDE\VALSARTAN
     Indication: Hypertension
     Dosage: 1 DF, QD STARTED APPROXIMATELY 15 YEARS AGO
     Route: 048
  2. NEUPAX [Concomitant]
     Indication: Anxiety
     Dosage: 0.5 DF, BID, STARTED APPROXIMATELY 25 YEARS AGO
     Route: 048
  3. NEUPAX [Concomitant]
     Indication: Fear
  4. SERTRALINE [Concomitant]
     Active Substance: SERTRALINE HYDROCHLORIDE
     Indication: Anxiety
     Dosage: 1 DF, QD, STARTED 25 YEARS AGO
     Route: 048
  5. LOSEC [Concomitant]
     Active Substance: OMEPRAZOLE
     Indication: Gastritis
     Dosage: 1 DF (STARTED 25 YEARS AGO)
     Route: 048
  6. TRIMEBUTINE [Concomitant]
     Active Substance: TRIMEBUTINE
     Indication: Gastritis
     Dosage: 1 DF
     Route: 048

REACTIONS (4)
  - Glaucoma [Not Recovered/Not Resolved]
  - Cataract [Not Recovered/Not Resolved]
  - Memory impairment [Unknown]
  - Vision blurred [Not Recovered/Not Resolved]
